FAERS Safety Report 4426417-7 (Version None)
Quarter: 2004Q3

REPORT INFORMATION
  Report Type: 
  Country: None (occurrence: None)
  Receive Date: 20040811
  Receipt Date: 20040730
  Transmission Date: 20050211
  Serious: Yes (Hospitalization)
  Sender: FDA-Public Use
  Company Number: 2004226508FR

PATIENT
  Age: 73 Year
  Sex: Male

DRUGS (4)
  1. ALDACTONE [Suspect]
     Indication: CARDIAC FAILURE
     Dosage: 25 MG, DAILY, ORAL
     Route: 048
     Dates: start: 20021220
  2. LISINOPRIL [Suspect]
     Indication: CARDIAC FAILURE
     Dosage: 5 MG, QD, ORAL
     Route: 048
     Dates: start: 20021220
  3. BETAHISTINE HYDROCHLORIDE (BETAHISTINE HYDROCHLORIDE) [Concomitant]
  4. BUMETANIDE [Concomitant]

REACTIONS (6)
  - ASTHENIA [None]
  - BUNDLE BRANCH BLOCK RIGHT [None]
  - CONCOMITANT DISEASE PROGRESSION [None]
  - GENERAL PHYSICAL CONDITION ABNORMAL [None]
  - RENAL FAILURE ACUTE [None]
  - SUPRAVENTRICULAR EXTRASYSTOLES [None]
